FAERS Safety Report 9009135 (Version 2)
Quarter: 2013Q4

REPORT INFORMATION
  Report Type: Spontaneous
  Country: US (occurrence: US)
  Receive Date: 20130111
  Receipt Date: 20131119
  Transmission Date: 20140711
  Serious: Yes (Other)
  Sender: FDA-Public Use
  Company Number: US-BAYER-2013-003646

PATIENT
  Age: 36 Year
  Sex: Female

DRUGS (7)
  1. OCELLA [Suspect]
     Indication: CONTRACEPTION
  2. YASMIN [Suspect]
     Indication: CONTRACEPTION
  3. RELENZA [Concomitant]
     Dosage: 5 MG, UNK
  4. PROMETHAZINE [Concomitant]
     Dosage: 25 MG, UNK
     Route: 048
  5. AZITHROMYCIN [Concomitant]
     Dosage: 250 MG, UNK
     Route: 048
  6. HYDROCODONE W/PARACETAMOL [Concomitant]
     Dosage: 10/325 MG, 7.5/325
     Route: 048
  7. HYDROCODONE W/PARACETAMOL [Concomitant]
     Route: 048

REACTIONS (5)
  - Cholecystectomy [None]
  - Cholecystitis chronic [None]
  - Injury [None]
  - Pain [None]
  - Pain [None]
